FAERS Safety Report 13373173 (Version 1)
Quarter: 2017Q1

REPORT INFORMATION
  Report Type: Spontaneous
  Country: US (occurrence: US)
  Receive Date: 20170327
  Receipt Date: 20170327
  Transmission Date: 20170429
  Serious: No
  Sender: FDA-Public Use
  Company Number: US-GLAXOSMITHKLINE-US2017041828

PATIENT
  Age: 85 Year
  Sex: Male

DRUGS (1)
  1. VENTOLIN HFA [Suspect]
     Active Substance: ALBUTEROL SULFATE
     Indication: DYSPNOEA
     Dosage: 2 PUFF(S), QID
     Route: 055
     Dates: start: 20170318, end: 201703

REACTIONS (10)
  - Sinus disorder [Not Recovered/Not Resolved]
  - Feeling abnormal [Recovered/Resolved]
  - Secretion discharge [Not Recovered/Not Resolved]
  - Malaise [Unknown]
  - Pulse abnormal [Recovered/Resolved]
  - Asthenia [Not Recovered/Not Resolved]
  - Nervousness [Recovered/Resolved]
  - Blood pressure increased [Recovered/Resolved]
  - Cough [Not Recovered/Not Resolved]
  - Palpitations [Recovered/Resolved]

NARRATIVE: CASE EVENT DATE: 20170318
